FAERS Safety Report 21839087 (Version 1)
Quarter: 2023Q1

REPORT INFORMATION
  Report Type: Spontaneous
  Country: US (occurrence: None)
  Receive Date: 20230108
  Receipt Date: 20230108
  Transmission Date: 20230417
  Serious: Yes (Life-Threatening, Hospitalization)
  Sender: FDA-Public Use
  Company Number: None

PATIENT
  Age: 55 Year
  Sex: Male

DRUGS (2)
  1. PRAZOSIN [Suspect]
     Active Substance: PRAZOSIN
     Indication: Nightmare
     Dosage: 2 MG AT BEDTIME PO?
     Route: 048
     Dates: start: 20221023, end: 20221025
  2. HYDROCHLOROTHIAZIDE [Suspect]
     Active Substance: HYDROCHLOROTHIAZIDE
     Indication: Hypertension
     Dosage: 25MG EVERY DAY PO
     Route: 048
     Dates: start: 20220321, end: 20221026

REACTIONS (5)
  - Hypotension [None]
  - Dysarthria [None]
  - Suicidal ideation [None]
  - Dizziness [None]
  - Therapy cessation [None]

NARRATIVE: CASE EVENT DATE: 20221024
